FAERS Safety Report 8514306-8 (Version None)
Quarter: 2012Q3

REPORT INFORMATION
  Report Type: 
  Country: None (occurrence: None)
  Receive Date: 20120717
  Receipt Date: 20120706
  Transmission Date: 20120928
  Serious: Yes (Hospitalization)
  Sender: FDA-Public Use
  Company Number: FR-SANOFI-AVENTIS-2012SA048118

PATIENT
  Age: 102 Year
  Sex: Female

DRUGS (6)
  1. ASPIRIN [Concomitant]
     Route: 048
  2. LAMALINE [Concomitant]
     Dosage: UP TO 3 TIMES/DAY.
     Route: 048
  3. LASIX [Suspect]
     Route: 048
     Dates: end: 20120208
  4. DILTIAZEM HYDROCHLORIDE [Concomitant]
     Route: 048
  5. BACTRIM [Suspect]
     Indication: URINARY TRACT INFECTION
     Route: 048
     Dates: start: 20120201, end: 20120208
  6. ACETAMINOPHEN [Concomitant]
     Dosage: AS NEEDED.
     Route: 048

REACTIONS (2)
  - HYPERKALAEMIA [None]
  - RENAL FAILURE ACUTE [None]
